FAERS Safety Report 12863685 (Version 4)
Quarter: 2017Q3

REPORT INFORMATION
  Report Type: Spontaneous
  Country: US (occurrence: US)
  Receive Date: 20161019
  Receipt Date: 20170724
  Transmission Date: 20171127
  Serious: Yes (Death, Hospitalization, Other)
  Sender: FDA-Public Use
  Company Number: US-TEVA-703753USA

PATIENT
  Age: 57 Year

DRUGS (5)
  1. INCB024360 [Concomitant]
     Active Substance: EPACADOSTAT
     Indication: METASTATIC CARCINOMA OF THE BLADDER
     Dosage: 200 MILLIGRAM DAILY; INCB024360
     Route: 048
     Dates: start: 20160620, end: 20160712
  2. MK-3475 [Concomitant]
     Active Substance: PEMBROLIZUMAB
     Dosage: 200 MG Q 3 WEEKS;
     Route: 042
     Dates: start: 20160824
  3. AMLODIPINE [Suspect]
     Active Substance: AMLODIPINE BESYLATE
     Indication: HYPERTENSION
     Route: 065
     Dates: end: 20160714
  4. MK-3475 [Concomitant]
     Active Substance: PEMBROLIZUMAB
     Dosage: 200 MG Q 3 WEEKS;
     Route: 042
     Dates: start: 20160712
  5. MK-3475 [Concomitant]
     Active Substance: PEMBROLIZUMAB
     Dosage: 200 MG Q 3 WEEKS;
     Route: 042
     Dates: start: 20160720

REACTIONS (8)
  - Dyspnoea [Fatal]
  - Scrotal oedema [Recovered/Resolved]
  - Acute kidney injury [Unknown]
  - Cellulitis of male external genital organ [Fatal]
  - Renal impairment [Recovered/Resolved]
  - Pleural effusion [Recovered/Resolved]
  - Oedema [Fatal]
  - Urinary tract obstruction [Fatal]

NARRATIVE: CASE EVENT DATE: 20160716
